FAERS Safety Report 5249009-9 (Version None)
Quarter: 2007Q1

REPORT INFORMATION
  Report Type: 
  Country: None (occurrence: None)
  Receive Date: 20070228
  Receipt Date: 20060627
  Transmission Date: 20070707
  Serious: No
  Sender: FDA-Public Use
  Company Number: US-GLAXOSMITHKLINE-A0606028A

PATIENT
  Age: 46 Year
  Sex: Female

DRUGS (7)
  1. VALTREX [Suspect]
     Dosage: 500MG TWICE PER DAY
     Route: 048
     Dates: start: 20050427
  2. LAMICTAL [Concomitant]
  3. THEOPHYLLINE [Concomitant]
  4. VALIUM [Concomitant]
  5. MULTI-VITAMIN [Concomitant]
  6. AEROBID [Concomitant]
  7. ALBUTEROL [Concomitant]

REACTIONS (3)
  - ALOPECIA [None]
  - CONDITION AGGRAVATED [None]
  - DRUG INEFFECTIVE [None]
